FAERS Safety Report 24278008 (Version 1)
Quarter: 2024Q3

REPORT INFORMATION
  Report Type: Spontaneous
  Country: CN (occurrence: CN)
  Receive Date: 20240903
  Receipt Date: 20240903
  Transmission Date: 20241016
  Serious: Yes (Other)
  Sender: NOVARTIS
  Company Number: CN-002147023-NVSC2024CN177075

PATIENT
  Age: 25 Year
  Sex: Male

DRUGS (1)
  1. EXJADE [Suspect]
     Active Substance: DEFERASIROX
     Indication: Thalassaemia beta
     Dosage: 1650 MG (ORAL - THROUGH THE MOUTH)
     Route: 048
     Dates: start: 20110128

REACTIONS (2)
  - Cardiac iron overload [Unknown]
  - Hepatic iron overload [Unknown]
